FAERS Safety Report 20037350 (Version 1)
Quarter: 2021Q4

REPORT INFORMATION
  Report Type: Spontaneous
  Country: US (occurrence: US)
  Receive Date: 20211105
  Receipt Date: 20211105
  Transmission Date: 20220303
  Serious: Yes (Death, Hospitalization, Other)
  Sender: FDA-Public Use
  Company Number: US-GSKCCFUS-Case-01209071_AE-70797

PATIENT
  Age: 47 Year
  Sex: Female

DRUGS (1)
  1. ZEJULA [Suspect]
     Active Substance: NIRAPARIB
     Indication: Ovarian cancer
     Dosage: 100 MG, QD
     Route: 048
     Dates: start: 20170401, end: 20180701

REACTIONS (6)
  - Intracranial aneurysm [Fatal]
  - Acute myeloid leukaemia [Fatal]
  - Myelodysplastic syndrome [Fatal]
  - Headache [Unknown]
  - Platelet count decreased [Unknown]
  - Blood pressure increased [Unknown]

NARRATIVE: CASE EVENT DATE: 20180701
